FAERS Safety Report 7279123 (Version 5)
Quarter: 2014Q1

REPORT INFORMATION
  Report Type: Spontaneous
  Country: US (occurrence: US)
  Receive Date: 20100216
  Receipt Date: 20140205
  Transmission Date: 20141002
  Serious: Yes (Other)
  Sender: FDA-Public Use
  Company Number: US-JNJFOC-20100202065

PATIENT
  Age: 41 Year
  Sex: Female
  Weight: 110 kg

DRUGS (6)
  1. TRINESSA [Suspect]
     Indication: CONTRACEPTION
     Route: 048
     Dates: start: 20080215, end: 20091116
  2. TANEZUMAB [Suspect]
     Indication: OSTEOARTHRITIS
     Route: 042
     Dates: start: 20090806, end: 20091002
  3. MULTIVITAMINS [Concomitant]
     Route: 065
     Dates: start: 20090811
  4. XYZAL [Concomitant]
     Route: 065
     Dates: start: 20090811
  5. IRON [Concomitant]
     Route: 065
     Dates: start: 20090811
  6. TOPOMAX [Concomitant]
     Route: 065
     Dates: start: 20060212

REACTIONS (3)
  - Abortion spontaneous [Recovered/Resolved]
  - Pregnancy on oral contraceptive [Recovered/Resolved]
  - Exposure during pregnancy [Recovered/Resolved]
